FAERS Safety Report 16090015 (Version 1)
Quarter: 2019Q2

REPORT INFORMATION
  Report Type: Spontaneous
  Country: US (occurrence: US)
  Receive Date: 20190319
  Receipt Date: 20190319
  Transmission Date: 20190711
  Serious: No
  Sender: FDA-Public Use
  Company Number: None

PATIENT
  Age: 63 Year
  Sex: Male
  Weight: 90 kg

DRUGS (2)
  1. LOSARTAN POTASSIUM TABLETS USP 50 MG [Suspect]
     Active Substance: LOSARTAN POTASSIUM
     Indication: HYPERTENSION
     Dosage: ?          QUANTITY:30 TABLET(S);?
     Route: 048
     Dates: start: 20180808, end: 20180901
  2. MALOXICAM [Concomitant]

REACTIONS (11)
  - Headache [None]
  - Recalled product administered [None]
  - Influenza like illness [None]
  - Vision blurred [None]
  - Gastrointestinal disorder [None]
  - Nausea [None]
  - Malaise [None]
  - Faeces discoloured [None]
  - Chills [None]
  - Pyrexia [None]
  - Product formulation issue [None]

NARRATIVE: CASE EVENT DATE: 20180901
